FAERS Safety Report 23854440 (Version 1)
Quarter: 2024Q2

REPORT INFORMATION
  Report Type: Spontaneous
  Country: RU (occurrence: RU)
  Receive Date: 20240514
  Receipt Date: 20240514
  Transmission Date: 20240716
  Serious: Yes (Other)
  Sender: FDA-Public Use
  Company Number: RU-SA-SAC20240510000704

PATIENT
  Sex: Male
  Weight: 92 kg

DRUGS (2)
  1. DUPILUMAB [Suspect]
     Active Substance: DUPILUMAB
     Indication: Asthma
     Dosage: 300MG QOW
     Route: 058
     Dates: start: 2020
  2. PREDNISOLONE [Concomitant]
     Active Substance: PREDNISOLONE
     Dosage: 5-10 MG EVERY OTHER DAY
     Dates: start: 2011, end: 202103

REACTIONS (1)
  - Angina unstable [Unknown]

NARRATIVE: CASE EVENT DATE: 20231001
